FAERS Safety Report 10563207 (Version 1)
Quarter: 2014Q4

REPORT INFORMATION
  Report Type: Spontaneous
  Country: US (occurrence: None)
  Receive Date: 20141103
  Receipt Date: 20141103
  Transmission Date: 20150529
  Serious: Yes (Hospitalization, Disabling)
  Sender: FDA-Public Use
  Company Number: None

PATIENT
  Age: 59 Year
  Sex: Female
  Weight: 68.04 kg

DRUGS (2)
  1. LEVAQUIN [Suspect]
     Active Substance: LEVOFLOXACIN
  2. CIPRO [Suspect]
     Active Substance: CIPROFLOXACIN HYDROCHLORIDE
     Indication: KNEE ARTHROPLASTY
     Dates: start: 20081016, end: 20090304

REACTIONS (5)
  - Visual impairment [None]
  - Glaucoma [None]
  - Hearing impaired [None]
  - Autoimmune inner ear disease [None]
  - Tendonitis [None]

NARRATIVE: CASE EVENT DATE: 20081028
